FAERS Safety Report 23595456 (Version 1)
Quarter: 2024Q1

REPORT INFORMATION
  Report Type: Spontaneous
  Country: DE (occurrence: DE)
  Receive Date: 20240305
  Receipt Date: 20240305
  Transmission Date: 20240409
  Serious: Yes (Life-Threatening, Other)
  Sender: FDA-Public Use
  Company Number: DE-MYLANLABS-2024M1018877

PATIENT
  Age: 65 Year
  Sex: Male

DRUGS (16)
  1. IRINOTECAN [Suspect]
     Active Substance: IRINOTECAN
     Indication: Colorectal cancer stage II
     Dosage: 180 MILLIGRAM/SQ. METER, BIWEEKLY, AS A PART OF FOLFIRI REGIMEN
     Route: 065
     Dates: start: 201611
  2. IRINOTECAN [Suspect]
     Active Substance: IRINOTECAN
     Indication: Metastases to lung
     Dosage: UNK, CYCLE, ~AFTER A NEW CATHETER WAS IMPLANTED, HE WAS RECHALLENGED (18 CYCLES)
     Route: 065
     Dates: start: 201801
  3. IRINOTECAN [Suspect]
     Active Substance: IRINOTECAN
     Indication: Metastases to liver
  4. FLUOROURACIL [Suspect]
     Active Substance: FLUOROURACIL
     Indication: Colorectal cancer stage II
     Dosage: 400 MILLIGRAM/SQ. METER, BIWEEKLY, AS A PART OF FOLFIRI REGIMEN
     Route: 065
     Dates: start: 201611
  5. FLUOROURACIL [Suspect]
     Active Substance: FLUOROURACIL
     Indication: Metastases to lung
     Dosage: 2400 MILLIGRAM/SQ. METER, BIWEEKLY, CONTINUOUS INFUSION FOR 42H
     Route: 065
     Dates: start: 201611
  6. FLUOROURACIL [Suspect]
     Active Substance: FLUOROURACIL
     Indication: Metastases to liver
     Dosage: 2400 MILLIGRAM/SQ. METER, BIWEEKLY, FUFA REGIMEN- CONTINUOUS INFUSION FOR 42 H
     Route: 065
     Dates: start: 2017
  7. FLUOROURACIL [Suspect]
     Active Substance: FLUOROURACIL
     Dosage: UNK, CYCLE, AFTER A NEW CATHETER WAS IMPLANTED, HE WAS RECHALLENGED
     Route: 065
     Dates: start: 201801
  8. FLUOROURACIL [Suspect]
     Active Substance: FLUOROURACIL
     Dosage: UNK, CYCLE, AFTER A NEW CATHETER WAS IMPLANTED, HE WAS RECHALLENGED, INFUSION
     Route: 042
     Dates: start: 201801
  9. LEUCOVORIN [Suspect]
     Active Substance: LEUCOVORIN\LEUCOVORIN CALCIUM
     Indication: Colorectal cancer stage II
     Dosage: 400 MILLIGRAM/SQ. METER, BIWEEKLY, AS A PART OF FOLFIRI REGIMEN
     Route: 065
     Dates: start: 201611
  10. LEUCOVORIN [Suspect]
     Active Substance: LEUCOVORIN\LEUCOVORIN CALCIUM
     Indication: Metastases to lung
     Dosage: 400 MILLIGRAM/SQ. METER, BIWEEKLY, FUFA REGIMEN
     Route: 065
     Dates: start: 2017
  11. LEUCOVORIN [Suspect]
     Active Substance: LEUCOVORIN\LEUCOVORIN CALCIUM
     Indication: Metastases to liver
     Dosage: UNK, CYCLE (AFTER A NEW CATHETER WAS IMPLANTED, HE WAS RECHALLENGED, 18 CYCLES)
     Route: 065
     Dates: start: 201801
  12. BEVACIZUMAB [Suspect]
     Active Substance: BEVACIZUMAB
     Indication: Colorectal cancer stage II
     Dosage: 5 MILLIGRAM/KILOGRAM, BIWEEKLY, AS A PART OF FOLFIRI REGIMEN
     Route: 065
     Dates: start: 201611
  13. BEVACIZUMAB [Suspect]
     Active Substance: BEVACIZUMAB
     Indication: Metastases to lung
     Dosage: UNK, AS MAINTENANCE TREATMENT
     Route: 065
     Dates: start: 2017
  14. BEVACIZUMAB [Suspect]
     Active Substance: BEVACIZUMAB
     Indication: Metastases to liver
     Dosage: UNK, AFTER A NEW CATHETER WAS IMPLANTED, HE WAS RECHALLENGED
     Route: 065
     Dates: start: 201801
  15. DEXAMETHASONE [Suspect]
     Active Substance: DEXAMETHASONE
     Indication: Premedication
     Dosage: UNK
     Route: 065
     Dates: start: 2016
  16. METFORMIN [Concomitant]
     Active Substance: METFORMIN HYDROCHLORIDE
     Indication: Type 2 diabetes mellitus
     Dosage: UNK
     Route: 065

REACTIONS (4)
  - Device related infection [Recovered/Resolved]
  - Diabetes mellitus [Unknown]
  - Stomatitis [Unknown]
  - Anal inflammation [Unknown]

NARRATIVE: CASE EVENT DATE: 20170101
